FAERS Safety Report 6910113-8 (Version None)
Quarter: 2010Q3

REPORT INFORMATION
  Report Type: 
  Country: None (occurrence: None)
  Receive Date: 20100806
  Receipt Date: 20100728
  Transmission Date: 20110219
  Serious: Yes (Other)
  Sender: FDA-Public Use
  Company Number: NL-TEVA-243175ISR

PATIENT
  Sex: Male

DRUGS (7)
  1. METHOTREXATE [Suspect]
     Indication: RHEUMATOID ARTHRITIS
     Dates: start: 19860101, end: 20100618
  2. ETANERCEPT [Suspect]
     Indication: RHEUMATOID ARTHRITIS
     Route: 058
     Dates: start: 20100201, end: 20100618
  3. HYDROXYCHLOROQUINE SULFATE [Concomitant]
     Dates: start: 19900101
  4. METOPROLOL TARTRATE [Concomitant]
     Dates: start: 20030101
  5. ACETYLSALICYLIC ACID SRT [Concomitant]
     Dates: start: 20030101
  6. PRAVASTATIN [Concomitant]
     Dates: start: 20030101
  7. DIPYRIDAMOLE [Concomitant]
     Dates: start: 20090101

REACTIONS (1)
  - MYELODYSPLASTIC SYNDROME [None]
